FAERS Safety Report 9438220 (Version 1)
Quarter: 2013Q3

REPORT INFORMATION
  Report Type: Spontaneous
  Country: US (occurrence: US)
  Receive Date: 20130802
  Receipt Date: 20130802
  Transmission Date: 20140515
  Serious: No
  Sender: FDA-Public Use
  Company Number: US-BRISTOL-MYERS SQUIBB COMPANY-17064205

PATIENT
  Age: 70 Year
  Sex: Female
  Weight: 98.86 kg

DRUGS (3)
  1. COUMADIN TABS 5 MG [Suspect]
     Indication: ATRIAL FIBRILLATION
     Dosage: RESTARTED COUMADIN 1/2 OF A 5MG TAB ON 3D+ 5MG TABLET OTHER DAYS?10MG
     Dates: start: 2005
  2. WARFARIN SODIUM [Interacting]
  3. FISH OIL [Interacting]
     Dosage: STOPPED FISH OIL 2 WEEKS AGO

REACTIONS (3)
  - International normalised ratio fluctuation [Unknown]
  - Muscle spasms [Unknown]
  - Drug interaction [Unknown]
